FAERS Safety Report 13289867 (Version 1)
Quarter: 2017Q1

REPORT INFORMATION
  Report Type: Spontaneous
  Country: US (occurrence: US)
  Receive Date: 20170302
  Receipt Date: 20170302
  Transmission Date: 20170428
  Serious: Yes (Other)
  Sender: FDA-Public Use
  Company Number: US-DEPOMED, INC.-US-2016DEP009630

PATIENT

DRUGS (3)
  1. GRALISE [Suspect]
     Active Substance: GABAPENTIN
     Dosage: 600 MG, QD WITH EVENING MEAL
     Route: 048
     Dates: start: 20160309, end: 20160318
  2. GRALISE [Suspect]
     Active Substance: GABAPENTIN
     Dosage: 600MG TO 900MG, QD WITH MORNING MEAL
     Route: 048
     Dates: start: 2016
  3. GRALISE [Suspect]
     Active Substance: GABAPENTIN
     Indication: NEUROPATHY PERIPHERAL
     Dosage: 300 MG, QD WITH EVENING MEAL
     Route: 048
     Dates: start: 20160304, end: 20160308

REACTIONS (6)
  - Memory impairment [Not Recovered/Not Resolved]
  - Feeling abnormal [Not Recovered/Not Resolved]
  - Tremor [Not Recovered/Not Resolved]
  - Off label use [Not Recovered/Not Resolved]
  - Bradyphrenia [Not Recovered/Not Resolved]
  - Coordination abnormal [Not Recovered/Not Resolved]

NARRATIVE: CASE EVENT DATE: 2016
